FAERS Safety Report 6782499-9 (Version None)
Quarter: 2010Q2

REPORT INFORMATION
  Report Type: 
  Country: None (occurrence: None)
  Receive Date: 20100616
  Receipt Date: 20100601
  Transmission Date: 20101027
  Serious: Yes (Hospitalization)
  Sender: FDA-Public Use
  Company Number: AMAG201000224

PATIENT
  Age: 89 Year
  Sex: Female
  Weight: 59.4 kg

DRUGS (14)
  1. FERAHEME [Suspect]
     Indication: IRON DEFICIENCY ANAEMIA
     Dosage: 330MG (11ML) SINGLE, INTRAVENOUS
     Route: 042
     Dates: start: 20100423, end: 20100423
  2. AMIODARONE (AMIODARONE HYDROCHLORIDE) [Concomitant]
  3. ASPRIN (ACETYLSALICYLIC ACID) [Concomitant]
  4. VITAMIN B-12 [Concomitant]
  5. CALCIUM (CALCIUM GLUBIONATE) [Concomitant]
  6. CENTRUM SILVER (ASORBIC ACID, CALCIUM, MINERIALS NOS, RETINOL, TOCOPHE [Concomitant]
  7. DEMADEX [Concomitant]
  8. DIGOXIN [Concomitant]
  9. LISINOPRIL (LISINOPRIL DIHYDRATE) [Concomitant]
  10. MAGNESIUM (MAGNESIUM HUYDROXIDE) [Concomitant]
  11. NOVOLOG MIX 70/30 [Concomitant]
  12. POTASSIUM (POTASSIUM GLUCONATE) [Concomitant]
  13. SYNTHROID [Concomitant]
  14. ZOCOR [Concomitant]

REACTIONS (20)
  - ACUTE PRERENAL FAILURE [None]
  - BLOOD LACTATE DEHYDROGENASE ABNORMAL [None]
  - CAROTID ARTERY STENOSIS [None]
  - CONVULSION [None]
  - COUGH [None]
  - DEHYDRATION [None]
  - DIZZINESS [None]
  - DYSPNOEA [None]
  - EYE ROLLING [None]
  - HYPONATRAEMIA [None]
  - HYPOTENSION [None]
  - HYPOVOLAEMIA [None]
  - LEUKOCYTOSIS [None]
  - OXYGEN SATURATION DECREASED [None]
  - PNEUMONIA [None]
  - PRESYNCOPE [None]
  - SEPSIS [None]
  - TACHYPNOEA [None]
  - UNRESPONSIVE TO STIMULI [None]
  - WHEEZING [None]
